FAERS Safety Report 11602003 (Version 1)
Quarter: 2015Q4

REPORT INFORMATION
  Report Type: Spontaneous
  Country: US (occurrence: US)
  Receive Date: 20151006
  Receipt Date: 20151006
  Transmission Date: 20160304
  Serious: No
  Sender: FDA-Public Use
  Company Number: US-AMGEN-USASP2015053318

PATIENT
  Age: 70 Year
  Sex: Female

DRUGS (1)
  1. PROLIA [Suspect]
     Active Substance: DENOSUMAB
     Indication: OSTEOPOROSIS POSTMENOPAUSAL
     Dosage: UNK
     Route: 030
     Dates: start: 201504

REACTIONS (15)
  - Pain [Recovered/Resolved]
  - Incorrect route of drug administration [Not Recovered/Not Resolved]
  - Immune system disorder [Unknown]
  - Heart rate irregular [Unknown]
  - Diarrhoea [Unknown]
  - Insomnia [Unknown]
  - Mobility decreased [Unknown]
  - Pain in extremity [Not Recovered/Not Resolved]
  - Adverse event [Unknown]
  - Cardiac disorder [Unknown]
  - Mental disorder [Unknown]
  - Feeling abnormal [Not Recovered/Not Resolved]
  - Migraine [Recovered/Resolved]
  - Malaise [Unknown]
  - Rash [Recovered/Resolved]

NARRATIVE: CASE EVENT DATE: 2015
